FAERS Safety Report 7520271-2 (Version None)
Quarter: 2011Q2

REPORT INFORMATION
  Report Type: 
  Country: None (occurrence: None)
  Receive Date: 20110602
  Receipt Date: 20110523
  Transmission Date: 20111010
  Serious: Yes (Other)
  Sender: FDA-Public Use
  Company Number: BE-BAYER-2011-031298

PATIENT
  Age: 74 Year
  Sex: Male

DRUGS (3)
  1. NOVALGINE [Concomitant]
     Indication: PYREXIA
  2. AVELOX [Concomitant]
     Dosage: UNK
  3. CIPROFLOXACIN [Suspect]
     Indication: PROSTATISM
     Dosage: 250 MG, TID
     Dates: start: 20110101, end: 20110101

REACTIONS (5)
  - WEIGHT DECREASED [None]
  - NAUSEA [None]
  - CONSTIPATION [None]
  - HAEMATOCHEZIA [None]
  - DECREASED APPETITE [None]
